FAERS Safety Report 20576149 (Version 1)
Quarter: 2022Q1

REPORT INFORMATION
  Report Type: Spontaneous
  Country: NL (occurrence: NL)
  Receive Date: 20220310
  Receipt Date: 20220310
  Transmission Date: 20220423
  Serious: Yes (Death)
  Sender: FDA-Public Use
  Company Number: None

PATIENT
  Age: 74 Year
  Sex: Male
  Weight: 115 kg

DRUGS (8)
  1. CLOPIDOGREL [Suspect]
     Active Substance: CLOPIDOGREL BISULFATE
     Indication: Carotid artery stenosis
     Dosage: STRENGTH: 75 MG, 1X DAILY
     Dates: start: 20210406
  2. COVID-19 VACCINE NOS [Suspect]
     Active Substance: COVID-19 VACCINE NOS
     Indication: COVID-19 immunisation
     Dosage: STRENGTH: 0.3 ML
     Dates: start: 20210413
  3. PANTOPRAZOLE [Concomitant]
     Active Substance: PANTOPRAZOLE
     Dosage: STRENGTH: 40 MG, 2 TIMES DAILY 75 MG
  4. OXAZEPAM [Concomitant]
     Active Substance: OXAZEPAM
     Dosage: STRENGTH: 10 MG, 1X DAILY
  5. PERINDOPRIL [Concomitant]
     Active Substance: PERINDOPRIL
     Dosage: STRENGTH:2 MG, 1X DAILY 2 MG
  6. SIMVASTATIN [Concomitant]
     Active Substance: SIMVASTATIN
     Dosage: STRENGTH: 20 MG, 1X DAILY
  7. VENLAFAXINE [Concomitant]
     Active Substance: VENLAFAXINE HYDROCHLORIDE
     Dosage: STRENGTH: 75 MG, 2 TIMES DAILY 75 MG
  8. QUETIAPINE [Concomitant]
     Active Substance: QUETIAPINE
     Dosage: STRENGTH: 12.5 MG, 1X DAILY
     Dates: start: 202102

REACTIONS (1)
  - Cerebral haemorrhage [Fatal]

NARRATIVE: CASE EVENT DATE: 20210428
